FAERS Safety Report 9008911 (Version 2)
Quarter: 2013Q1

REPORT INFORMATION
  Report Type: Spontaneous
  Country: JP (occurrence: JP)
  Receive Date: 20130111
  Receipt Date: 20130205
  Transmission Date: 20140127
  Serious: Yes (Death)
  Sender: FDA-Public Use
  Company Number: JP-JNJFOC-20130105486

PATIENT
  Age: 81 Year
  Sex: Female
  Weight: 60 kg

DRUGS (11)
  1. REMINYL [Suspect]
     Indication: DEMENTIA ALZHEIMER^S TYPE
     Route: 048
     Dates: start: 20121208, end: 20121223
  2. DIART [Concomitant]
     Indication: HYPERTENSION
     Route: 048
     Dates: start: 20121009
  3. ARTIST [Concomitant]
     Indication: HYPERTENSION
     Route: 048
  4. SELARA (EPLERENONE) [Concomitant]
     Indication: HYPERTENSION
     Route: 048
  5. FEBURIC [Concomitant]
     Indication: HYPERTENSION
     Route: 048
     Dates: start: 20120403
  6. MICARDIS [Concomitant]
     Indication: HYPERTENSION
     Route: 048
  7. LIPITOR [Concomitant]
     Indication: DYSLIPIDAEMIA
     Route: 048
  8. NEXIUM [Concomitant]
     Indication: PROPHYLAXIS
     Route: 048
     Dates: start: 20120403
  9. WARFARIN [Concomitant]
     Indication: THROMBOSIS PROPHYLAXIS
     Route: 048
  10. MAGLAX [Concomitant]
     Indication: CONSTIPATION
     Route: 048
  11. SHAKUYAKUKANZOUTOU [Concomitant]
     Indication: MUSCLE SPASMS
     Route: 048

REACTIONS (1)
  - Sudden death [Fatal]
